FAERS Safety Report 14143185 (Version 1)
Quarter: 2017Q4

REPORT INFORMATION
  Report Type: Report from Study
  Country: IL (occurrence: IL)
  Receive Date: 20171030
  Receipt Date: 20171030
  Transmission Date: 20180321
  Serious: Yes (Death, Hospitalization)
  Sender: FDA-Public Use
  Company Number: IL-B.I. PHARMACEUTICALS,INC./RIDGEFIELD-2017-BI-058492

PATIENT
  Age: 85 Year
  Sex: Male

DRUGS (2)
  1. PRADAXA [Suspect]
     Active Substance: DABIGATRAN ETEXILATE MESYLATE
     Indication: PRODUCT USED FOR UNKNOWN INDICATION
     Route: 065
  2. DIGOXIN. [Suspect]
     Active Substance: DIGOXIN
     Indication: PRODUCT USED FOR UNKNOWN INDICATION
     Route: 065

REACTIONS (10)
  - Gastrointestinal haemorrhage [Fatal]
  - Acute kidney injury [Fatal]
  - Poisoning [Fatal]
  - Hypotension [Fatal]
  - Atrioventricular block complete [Fatal]
  - Toxicity to various agents [Unknown]
  - Cognitive disorder [Fatal]
  - Renal failure [Fatal]
  - Haemoglobin decreased [Fatal]
  - Malaise [Fatal]
